FAERS Safety Report 21308426 (Version 1)
Quarter: 2022Q3

REPORT INFORMATION
  Report Type: Spontaneous
  Country: US (occurrence: None)
  Receive Date: 20220908
  Receipt Date: 20220908
  Transmission Date: 20221027
  Serious: No
  Sender: FDA-Public Use
  Company Number: None

PATIENT
  Age: 37 Year
  Sex: Male
  Weight: 112.04 kg

DRUGS (1)
  1. DUPIXENT [Suspect]
     Active Substance: DUPILUMAB
     Dosage: OTHER FREQUENCY : Q 2WEEKS;?
     Route: 058

REACTIONS (6)
  - Swelling of eyelid [None]
  - Oropharyngeal pain [None]
  - Fatigue [None]
  - Arthralgia [None]
  - Tremor [None]
  - Injection site reaction [None]

NARRATIVE: CASE EVENT DATE: 20220815
